FAERS Safety Report 5256235-1 (Version None)
Quarter: 2007Q1

REPORT INFORMATION
  Report Type: 
  Country: None (occurrence: None)
  Receive Date: 20070302
  Receipt Date: 20070302
  Transmission Date: 20070707
  Serious: Yes (Hospitalization)
  Sender: FDA-Public Use
  Company Number: None

PATIENT
  Age: 51 Year
  Sex: Female
  Weight: 94 kg

DRUGS (8)
  1. AMBIEN [Suspect]
     Indication: INSOMNIA
     Dosage: 5MG DAILY PO
     Route: 048
  2. ZOCOR [Concomitant]
  3. ZOLOFT [Concomitant]
  4. AMITRIPTYLINE HCL [Concomitant]
  5. CELEBREX [Concomitant]
  6. IRON [Concomitant]
  7. CALCIUM [Concomitant]
  8. GLUCOSAMINE [Concomitant]

REACTIONS (3)
  - ABNORMAL SLEEP-RELATED EVENT [None]
  - PARASOMNIA [None]
  - SLEEP WALKING [None]
